FAERS Safety Report 11378064 (Version 1)
Quarter: 2015Q3

REPORT INFORMATION
  Report Type: Spontaneous
  Country: US (occurrence: US)
  Receive Date: 20150811
  Receipt Date: 20150811
  Transmission Date: 20151125
  Serious: No
  Sender: FDA-Public Use
  Company Number: US-ELI_LILLY_AND_COMPANY-US201112006331

PATIENT
  Sex: Male

DRUGS (3)
  1. ANDROGEL [Concomitant]
     Active Substance: TESTOSTERONE
     Indication: BLOOD TESTOSTERONE DECREASED
  2. ANTIHYPERTENSIVES [Concomitant]
     Active Substance: UNSPECIFIED INGREDIENT
  3. CIALIS [Suspect]
     Active Substance: TADALAFIL
     Indication: ERECTILE DYSFUNCTION
     Dosage: 20 MG, PRN
     Dates: start: 201109

REACTIONS (6)
  - Asthenia [Unknown]
  - Blood pressure abnormal [Unknown]
  - Fatigue [Unknown]
  - Feeling abnormal [Unknown]
  - Pruritus [Unknown]
  - Drug ineffective [Unknown]
